FAERS Safety Report 24031277 (Version 2)
Quarter: 2024Q3

REPORT INFORMATION
  Report Type: Spontaneous
  Country: JP (occurrence: JP)
  Receive Date: 20240629
  Receipt Date: 20240729
  Transmission Date: 20241017
  Serious: Yes (Disabling)
  Sender: ABBVIE
  Company Number: JP-ABBVIE-5820832

PATIENT
  Age: 87 Year
  Sex: Female

DRUGS (6)
  1. LUMIGAN [Suspect]
     Active Substance: BIMATOPROST
     Indication: Glaucoma
     Route: 047
  2. BRIMONIDINE TARTRATE\BRINZOLAMIDE [Suspect]
     Active Substance: BRIMONIDINE TARTRATE\BRINZOLAMIDE
     Indication: Glaucoma
     Route: 047
     Dates: start: 20200918, end: 20231025
  3. RIPASUDIL HYDROCHLORIDE DIHYDRATE [Concomitant]
     Active Substance: RIPASUDIL HYDROCHLORIDE DIHYDRATE
     Indication: Glaucoma
     Route: 047
  4. RINDERON [Concomitant]
     Indication: Postoperative care
     Route: 047
  5. POTASSIUM IODIDE [Concomitant]
     Active Substance: POTASSIUM IODIDE
     Indication: Graves^ disease
     Route: 048
  6. LEVOTHYROXINE SODIUM [Concomitant]
     Active Substance: LEVOTHYROXINE SODIUM
     Indication: Graves^ disease
     Dosage: 1 DF, 3 TIMES IN 2 DAYS
     Route: 048

REACTIONS (1)
  - Corneal opacity [Unknown]

NARRATIVE: CASE EVENT DATE: 20210428
